FAERS Safety Report 18861295 (Version 8)
Quarter: 2022Q1

REPORT INFORMATION
  Report Type: Report from Study
  Country: US (occurrence: US)
  Receive Date: 20210208
  Receipt Date: 20220106
  Transmission Date: 20220423
  Serious: No
  Sender: FDA-Public Use
  Company Number: NVSC2021US020981

PATIENT
  Sex: Male

DRUGS (1)
  1. ENTRESTO [Suspect]
     Active Substance: SACUBITRIL\VALSARTAN
     Indication: Product used for unknown indication
     Dosage: 200 MG, BID (97/103 MG)
     Route: 048
     Dates: start: 2020

REACTIONS (13)
  - Weight increased [Not Recovered/Not Resolved]
  - Eating disorder symptom [Unknown]
  - Decreased activity [Unknown]
  - Sneezing [Not Recovered/Not Resolved]
  - Swelling [Not Recovered/Not Resolved]
  - Lung disorder [Unknown]
  - Throat clearing [Unknown]
  - Weight decreased [Unknown]
  - Dizziness postural [Unknown]
  - Blood potassium increased [Unknown]
  - Ejection fraction decreased [Unknown]
  - Hypersensitivity [Not Recovered/Not Resolved]
  - Cough [Not Recovered/Not Resolved]
